FAERS Safety Report 14444613 (Version 1)
Quarter: 2018Q1

REPORT INFORMATION
  Report Type: Report from Study
  Country: ZA (occurrence: ZA)
  Receive Date: 20180126
  Receipt Date: 20180126
  Transmission Date: 20180509
  Serious: Yes (Death, Hospitalization)
  Sender: FDA-Public Use
  Company Number: ZA-VIFOR (INTERNATIONAL) INC.-VIT-2018-00869

PATIENT
  Age: 57 Year
  Sex: Female

DRUGS (3)
  1. MIRCERA [Suspect]
     Active Substance: METHOXY POLYETHYLENE GLYCOL-EPOETIN BETA
     Indication: NEPHROGENIC ANAEMIA
     Route: 058
     Dates: start: 201211, end: 201305
  2. MIRCERA [Suspect]
     Active Substance: METHOXY POLYETHYLENE GLYCOL-EPOETIN BETA
     Route: 058
     Dates: start: 2013, end: 201306
  3. ONEALFA [Concomitant]
     Active Substance: ALFACALCIDOL

REACTIONS (2)
  - Hypertension [Fatal]
  - Diabetes mellitus [Fatal]

NARRATIVE: CASE EVENT DATE: 20130601
